FAERS Safety Report 14609791 (Version 4)
Quarter: 2018Q2

REPORT INFORMATION
  Report Type: Report from Study
  Country: US (occurrence: US)
  Receive Date: 20180307
  Receipt Date: 20180626
  Transmission Date: 20180711
  Serious: Yes (Hospitalization, Other)
  Sender: FDA-Public Use
  Company Number: US-EISAI MEDICAL RESEARCH-EC-2018-036728

PATIENT
  Age: 58 Year
  Sex: Female
  Weight: 111.5 kg

DRUGS (22)
  1. ALBUTEROL. [Concomitant]
     Active Substance: ALBUTEROL
  2. NEUPOGEN [Concomitant]
     Active Substance: FILGRASTIM
  3. NORCO [Concomitant]
     Active Substance: ACETAMINOPHEN\HYDROCODONE BITARTRATE
  4. RISPERIDONE. [Concomitant]
     Active Substance: RISPERIDONE
  5. POTASSIUM CHLORIDE. [Concomitant]
     Active Substance: POTASSIUM CHLORIDE
  6. FENTANYL. [Concomitant]
     Active Substance: FENTANYL
  7. METOCLOPRAMIDE. [Concomitant]
     Active Substance: METOCLOPRAMIDE
  8. LENVATINIB [Suspect]
     Active Substance: LENVATINIB
     Route: 048
     Dates: start: 20180507, end: 20180603
  9. CYCLOBENZAPRINE. [Concomitant]
     Active Substance: CYCLOBENZAPRINE
  10. VENLAFAXINE [Concomitant]
     Active Substance: VENLAFAXINE HYDROCHLORIDE
  11. GABAPENTIN. [Concomitant]
     Active Substance: GABAPENTIN
  12. ONDANSETRON [Concomitant]
     Active Substance: ONDANSETRON
  13. SODIUM CHLORIDE. [Concomitant]
     Active Substance: SODIUM CHLORIDE
  14. PREDNISONE. [Concomitant]
     Active Substance: PREDNISONE
  15. CETRIZINE [Concomitant]
     Active Substance: CETIRIZINE HYDROCHLORIDE
  16. LENVATINIB [Suspect]
     Active Substance: LENVATINIB
     Indication: LEIOMYOSARCOMA
     Route: 048
     Dates: start: 20180124, end: 20180221
  17. ERIBULIN [Suspect]
     Active Substance: ERIBULIN
     Indication: LEIOMYOSARCOMA
     Route: 048
     Dates: start: 20180123, end: 20180529
  18. LASIX [Concomitant]
     Active Substance: FUROSEMIDE
  19. DURAGESIC [Concomitant]
     Active Substance: FENTANYL
  20. MAGIC MOUTH WASH [Concomitant]
     Active Substance: ALUMINUM HYDROXIDE\DIMETHICONE\DIPHENHYDRAMINE\LIDOCAINE\MAGNESIUM HYDROXIDE
  21. LEVOTHYROXINE. [Concomitant]
     Active Substance: LEVOTHYROXINE
  22. HYDROCHLOROTHIAZIDE. [Concomitant]
     Active Substance: HYDROCHLOROTHIAZIDE

REACTIONS (2)
  - Brain oedema [Recovered/Resolved with Sequelae]
  - Pyelonephritis [Recovered/Resolved]

NARRATIVE: CASE EVENT DATE: 20180220
